FAERS Safety Report 8158696-7 (Version None)
Quarter: 2012Q1

REPORT INFORMATION
  Report Type: 
  Country: None (occurrence: None)
  Receive Date: 20120223
  Receipt Date: 20120215
  Transmission Date: 20120608
  Serious: Yes (Hospitalization, Other)
  Sender: FDA-Public Use
  Company Number: US-BAYER-201032082NA

PATIENT
  Age: 50 Year
  Sex: Female
  Weight: 95.238 kg

DRUGS (17)
  1. MOBIC [Concomitant]
  2. DIFLUNISAL [Concomitant]
  3. PROZAC [Concomitant]
  4. YASMIN [Suspect]
     Indication: PRODUCT USED FOR UNKNOWN INDICATION
     Dosage: UNK
     Dates: start: 20010901, end: 20080601
  5. ORTHO-NOVUM [ETHINYLESTRADIOL,NORETHISTERONE] [Concomitant]
     Dosage: UNK
     Dates: start: 20090101
  6. BENICAR [Concomitant]
  7. SEROQUEL [Concomitant]
  8. NORCO [Concomitant]
     Indication: PAIN
  9. DROSPIRENONE AND ETHINYL ESTRADIOL [Suspect]
     Indication: PRODUCT USED FOR UNKNOWN INDICATION
     Dosage: UNK
     Dates: start: 20080701, end: 20090801
  10. LYBREL [Concomitant]
     Dosage: UNK
     Dates: start: 20090909, end: 20100520
  11. WELLBUTRIN [Concomitant]
  12. IBUPROFEN [Concomitant]
  13. NAPROXEN [Concomitant]
  14. ALLEGRA [Concomitant]
  15. AMBIEN [Concomitant]
  16. SIMVASTATIN [Concomitant]
  17. ZOCOR [Concomitant]

REACTIONS (10)
  - NAUSEA [None]
  - DYSPNOEA EXERTIONAL [None]
  - CHOLELITHIASIS [None]
  - ABDOMINAL PAIN UPPER [None]
  - DEEP VEIN THROMBOSIS [None]
  - JOINT SWELLING [None]
  - BILIARY COLIC [None]
  - PULMONARY EMBOLISM [None]
  - CHOLECYSTITIS [None]
  - PANCREATITIS [None]
